FAERS Safety Report 11673033 (Version 1)
Quarter: 2015Q4

REPORT INFORMATION
  Report Type: Spontaneous
  Country: US (occurrence: None)
  Receive Date: 20151026
  Receipt Date: 20151026
  Transmission Date: 20160304
  Serious: Yes (Hospitalization)
  Sender: FDA-Public Use
  Company Number: None

PATIENT
  Age: 61 Year
  Sex: Male
  Weight: 94.3 kg

DRUGS (2)
  1. LEDIPASVIR/SOFOSBUVIR [Suspect]
     Active Substance: LEDIPASVIR\SOFOSBUVIR
     Indication: HEPATITIS C
     Dosage: 90/400 MG?
     Route: 048
     Dates: start: 20150828
  2. RIBAVIRIN. [Suspect]
     Active Substance: RIBAVIRIN
     Indication: HEPATITIS C
     Dosage: 400 MG, OTHER
     Route: 048
     Dates: start: 20150828

REACTIONS (4)
  - Arthralgia [None]
  - Malaise [None]
  - Fatigue [None]
  - Anaemia [None]

NARRATIVE: CASE EVENT DATE: 20150924
